FAERS Safety Report 8243703-3 (Version None)
Quarter: 2012Q1

REPORT INFORMATION
  Report Type: 
  Country: None (occurrence: None)
  Receive Date: 20120329
  Receipt Date: 20110307
  Transmission Date: 20120608
  Serious: No
  Sender: FDA-Public Use
  Company Number: US-MYLANLABS-2011S1002974

PATIENT
  Sex: Female

DRUGS (8)
  1. EMSAM [Suspect]
     Indication: DEPRESSION
     Dosage: QD
     Route: 062
     Dates: start: 20070101
  2. AMLODIPINE [Concomitant]
  3. NEXIUM [Concomitant]
  4. PERCOCET [Concomitant]
  5. COZAAR [Concomitant]
  6. LITHIUM CARBONATE [Concomitant]
  7. SYNTHROID [Concomitant]
  8. LYRICA [Concomitant]

REACTIONS (7)
  - ERYTHEMA [None]
  - APPLICATION SITE PRURITUS [None]
  - APPLICATION SITE VESICLES [None]
  - SKIN BURNING SENSATION [None]
  - APPLICATION SITE URTICARIA [None]
  - RASH [None]
  - APPLICATION SITE RASH [None]
